FAERS Safety Report 17396872 (Version 2)
Quarter: 2020Q2

REPORT INFORMATION
  Report Type: Spontaneous
  Country: US (occurrence: US)
  Receive Date: 20200210
  Receipt Date: 20200601
  Transmission Date: 20200713
  Serious: No
  Sender: FDA-Public Use
  Company Number: US-PFIZER INC-2020058395

PATIENT
  Age: 58 Year
  Sex: Male

DRUGS (1)
  1. XELJANZ XR [Suspect]
     Active Substance: TOFACITINIB CITRATE
     Indication: RHEUMATOID ARTHRITIS
     Dosage: 11 MG, DAILY
     Route: 048
     Dates: start: 201905

REACTIONS (6)
  - Hepatic enzyme increased [Unknown]
  - Liver disorder [Unknown]
  - Insomnia [Unknown]
  - Bronchitis [Unknown]
  - Blood cholesterol increased [Unknown]
  - Condition aggravated [Recovering/Resolving]
